FAERS Safety Report 15477405 (Version 1)
Quarter: 2018Q4

REPORT INFORMATION
  Report Type: Spontaneous
  Country: US (occurrence: US)
  Receive Date: 20181009
  Receipt Date: 20181009
  Transmission Date: 20190205
  Serious: No
  Sender: FDA-Public Use
  Company Number: US-ASTRAZENECA-2018SF24215

PATIENT
  Sex: Female

DRUGS (1)
  1. DAPAGLIFLOZIN. [Suspect]
     Active Substance: DAPAGLIFLOZIN
     Route: 048

REACTIONS (6)
  - Genital discomfort [Unknown]
  - Diarrhoea [Unknown]
  - Weight increased [Unknown]
  - Pain [Unknown]
  - Therapy cessation [Unknown]
  - Blood glucose abnormal [Unknown]
